FAERS Safety Report 6619389-8 (Version None)
Quarter: 2010Q1

REPORT INFORMATION
  Report Type: 
  Country: None (occurrence: None)
  Receive Date: 20100309
  Receipt Date: 20100302
  Transmission Date: 20100710
  Serious: Yes (Death, Hospitalization)
  Sender: FDA-Public Use
  Company Number: US-BIOGENIDEC-2009BI041494

PATIENT
  Age: 61 Year
  Sex: Female

DRUGS (2)
  1. TYSABRI [Suspect]
     Indication: MULTIPLE SCLEROSIS
     Route: 042
     Dates: start: 20070212, end: 20070817
  2. TYSABRI [Suspect]
     Route: 042
     Dates: start: 20091113, end: 20091113

REACTIONS (2)
  - DEATH [None]
  - MULTIPLE SCLEROSIS [None]
